FAERS Safety Report 5618156-1 (Version None)
Quarter: 2008Q1

REPORT INFORMATION
  Report Type: 
  Country: None (occurrence: None)
  Receive Date: 20080207
  Receipt Date: 20071019
  Transmission Date: 20080703
  Serious: No
  Sender: FDA-Public Use
  Company Number: A0688750A

PATIENT
  Age: 27 Year
  Sex: Female

DRUGS (2)
  1. PAXIL [Suspect]
     Dosage: 20MG PER DAY
     Route: 048
     Dates: start: 20000101
  2. AVIANE-21 [Concomitant]

REACTIONS (4)
  - MALAISE [None]
  - NIGHT SWEATS [None]
  - PYREXIA [None]
  - WITHDRAWAL SYNDROME [None]
